FAERS Safety Report 18751535 (Version 2)
Quarter: 2021Q1

REPORT INFORMATION
  Report Type: Spontaneous
  Country: US (occurrence: US)
  Receive Date: 20210118
  Receipt Date: 20210312
  Transmission Date: 20210419
  Serious: Yes (Other)
  Sender: FDA-Public Use
  Company Number: US-GLAXOSMITHKLINE-US2021GSK011177

PATIENT
  Sex: Male

DRUGS (2)
  1. RANITIDINE. [Suspect]
     Active Substance: RANITIDINE
     Dosage: UNK, OVER THE COUNTER WE
     Route: 065
     Dates: start: 199501, end: 200501
  2. RANITIDINE. [Suspect]
     Active Substance: RANITIDINE
     Dosage: UNK, OVER THE COUNTER WE
     Route: 065
     Dates: start: 199501, end: 200501

REACTIONS (1)
  - Renal cancer [Unknown]
